FAERS Safety Report 15532468 (Version 4)
Quarter: 2019Q1

REPORT INFORMATION
  Report Type: Spontaneous
  Country: JP (occurrence: JP)
  Receive Date: 20181019
  Receipt Date: 20190116
  Transmission Date: 20190417
  Serious: Yes (Hospitalization)
  Sender: FDA-Public Use
  Company Number: JP-009507513-1810JPN008324

PATIENT
  Age: 76 Year
  Sex: Male
  Weight: 66 kg

DRUGS (8)
  1. DICLOFENAC [Suspect]
     Active Substance: DICLOFENAC
     Indication: CELLULITIS
     Dosage: 37.5 MG, BID
     Route: 048
     Dates: start: 20180831, end: 20180927
  2. ESOMEPRAZOLE. [Concomitant]
     Active Substance: ESOMEPRAZOLE MAGNESIUM
     Dosage: 10 MG, BID
     Dates: start: 20180719, end: 20181010
  3. BAYASPIRIN [Concomitant]
     Active Substance: ASPIRIN
     Dosage: 100 MG, QD
     Dates: start: 20180719, end: 20181010
  4. LIPOVAS (FENOFIBRATE) [Concomitant]
     Dosage: 5 MG, QD
     Dates: start: 20180719, end: 20181010
  5. HALCION [Concomitant]
     Active Substance: TRIAZOLAM
     Dosage: 1 DF, QD
     Dates: start: 20180719, end: 20181010
  6. URSODIOL. [Concomitant]
     Active Substance: URSODIOL
     Dosage: 1 DF, TID
     Dates: start: 20180719, end: 20181010
  7. JUVELA N [Concomitant]
     Active Substance: TOCOPHERYL NICOTINATE, D-.ALPHA.
     Dosage: 100 MG, QD
     Dates: start: 20180719, end: 20181010
  8. TEDIZOLID PHOSPHATE. [Suspect]
     Active Substance: TEDIZOLID PHOSPHATE
     Indication: CELLULITIS
     Dosage: 200 MG, QD
     Route: 048
     Dates: start: 20180830, end: 20180914

REACTIONS (11)
  - Haematochezia [Recovered/Resolved]
  - Anaemia [Recovered/Resolved]
  - Gastrointestinal haemorrhage [Recovered/Resolved]
  - Abdominal pain [Recovered/Resolved]
  - Melaena [Recovered/Resolved]
  - Decreased appetite [Recovered/Resolved]
  - Abdominal discomfort [Recovered/Resolved]
  - Enteritis [Recovered/Resolved]
  - Diarrhoea [Recovered/Resolved]
  - Haemoglobin decreased [Recovered/Resolved]
  - Abdominal pain upper [Recovered/Resolved]

NARRATIVE: CASE EVENT DATE: 20180911
